FAERS Safety Report 18439940 (Version 1)
Quarter: 2020Q4

REPORT INFORMATION
  Report Type: Spontaneous
  Country: US (occurrence: US)
  Receive Date: 20201028
  Receipt Date: 20201028
  Transmission Date: 20210114
  Serious: Yes (Other)
  Sender: FDA-Public Use
  Company Number: None

PATIENT
  Age: 64 Year
  Sex: Female
  Weight: 58.5 kg

DRUGS (4)
  1. BUTABITAL/ASA [Concomitant]
  2. LIDOCAINE. [Suspect]
     Active Substance: LIDOCAINE
     Indication: DIAGNOSTIC PROCEDURE
     Dates: start: 20200922, end: 20200922
  3. ASPIRIN. [Concomitant]
     Active Substance: ASPIRIN
  4. SIMVASTATIN. [Concomitant]
     Active Substance: SIMVASTATIN

REACTIONS (14)
  - Post procedural complication [None]
  - Balance disorder [None]
  - Night sweats [None]
  - Haemorrhage [None]
  - Asthenia [None]
  - Periorbital swelling [None]
  - Loss of consciousness [None]
  - Neuralgia [None]
  - Fall [None]
  - Contusion [None]
  - Procedural pain [None]
  - Arthralgia [None]
  - Photopsia [None]
  - Fatigue [None]

NARRATIVE: CASE EVENT DATE: 20200922
